FAERS Safety Report 6723524-0 (Version None)
Quarter: 2010Q2

REPORT INFORMATION
  Report Type: 
  Country: None (occurrence: None)
  Receive Date: 20100513
  Receipt Date: 20100305
  Transmission Date: 20101027
  Serious: Yes (Hospitalization, Disabling, Other)
  Sender: FDA-Public Use
  Company Number: US-ROCHE-345207

PATIENT
  Sex: Male
  Weight: 73.5 kg

DRUGS (1)
  1. ACCUTANE [Suspect]
     Indication: ACNE
     Route: 048
     Dates: start: 19950622, end: 19951019

REACTIONS (26)
  - ADJUSTMENT DISORDER [None]
  - ANGER [None]
  - ANXIETY [None]
  - ARTHRALGIA [None]
  - BLOOD CHOLESTEROL INCREASED [None]
  - CAT SCRATCH DISEASE [None]
  - CHAPPED LIPS [None]
  - CHOLELITHIASIS [None]
  - COLITIS [None]
  - COLITIS ULCERATIVE [None]
  - CONSTIPATION [None]
  - CONVULSION [None]
  - DECREASED APPETITE [None]
  - DEPRESSION [None]
  - ENCEPHALOPATHY [None]
  - GASTRITIS [None]
  - GASTROENTERITIS [None]
  - HAND FRACTURE [None]
  - HIATUS HERNIA [None]
  - HYPOGLYCAEMIA [None]
  - INFLAMMATORY BOWEL DISEASE [None]
  - LEGIONELLA INFECTION [None]
  - LYMPHADENOPATHY [None]
  - OCULAR HYPERAEMIA [None]
  - PNEUMONIA [None]
  - PYREXIA [None]
